FAERS Safety Report 13074668 (Version 1)
Quarter: 2016Q4

REPORT INFORMATION
  Report Type: Spontaneous
  Country: US (occurrence: US)
  Receive Date: 20161230
  Receipt Date: 20161230
  Transmission Date: 20170207
  Serious: No
  Sender: FDA-Public Use
  Company Number: US-TEVA-661549USA

PATIENT
  Sex: Female
  Weight: 54.48 kg

DRUGS (2)
  1. TRAZODONE [Suspect]
     Active Substance: TRAZODONE HYDROCHLORIDE
     Indication: DEMENTIA ALZHEIMER^S TYPE
     Route: 065
     Dates: start: 20160513
  2. TRAZODONE [Suspect]
     Active Substance: TRAZODONE HYDROCHLORIDE
     Indication: SEDATION

REACTIONS (6)
  - Intercepted drug prescribing error [Unknown]
  - Psychomotor hyperactivity [Not Recovered/Not Resolved]
  - Thinking abnormal [Not Recovered/Not Resolved]
  - Insomnia [Not Recovered/Not Resolved]
  - Feeling drunk [Not Recovered/Not Resolved]
  - Dizziness [Not Recovered/Not Resolved]
